FAERS Safety Report 10792607 (Version 3)
Quarter: 2015Q1

REPORT INFORMATION
  Report Type: Spontaneous
  Country: JP (occurrence: JP)
  Receive Date: 20150213
  Receipt Date: 20150320
  Transmission Date: 20150721
  Serious: Yes (Death, Hospitalization, Disabling)
  Sender: FDA-Public Use
  Company Number: JP-B.I. PHARMACEUTICALS,INC./RIDGEFIELD-2015-BI-06805GD

PATIENT
  Age: 76 Year
  Sex: Male

DRUGS (10)
  1. LUPRAC [Concomitant]
     Active Substance: TORSEMIDE
     Indication: OEDEMA DUE TO RENAL DISEASE
     Dosage: 8 MG
     Route: 048
     Dates: end: 20130716
  2. LEVOTHYROXINE NA [Concomitant]
     Indication: HYPOTHYROIDISM
     Dosage: 50 MG
     Route: 048
     Dates: end: 20130711
  3. METLIGINE [Concomitant]
     Active Substance: MIDODRINE HYDROCHLORIDE
     Indication: ORTHOSTATIC HYPOTENSION
     Dosage: 4 MG
     Route: 048
     Dates: start: 20130222
  4. ALDACTONE [Concomitant]
     Active Substance: SPIRONOLACTONE
     Indication: OEDEMA DUE TO RENAL DISEASE
     Dosage: 50 MG
     Route: 048
     Dates: start: 20130524, end: 20130703
  5. LINAGLIPTIN [Suspect]
     Active Substance: LINAGLIPTIN
     Indication: DIABETIC NEPHROPATHY
     Dosage: 5 MG
     Route: 048
     Dates: start: 20121113, end: 20130621
  6. CRESTOR [Concomitant]
     Active Substance: ROSUVASTATIN CALCIUM
     Indication: HYPERCHOLESTEROLAEMIA
     Dosage: 2.5 MG
     Route: 048
     Dates: end: 20130711
  7. PARIET [Concomitant]
     Active Substance: RABEPRAZOLE SODIUM
     Indication: GASTROOESOPHAGEAL REFLUX DISEASE
     Dosage: 10 MG
     Route: 048
     Dates: end: 20130711
  8. PRIMPERAN [Concomitant]
     Active Substance: METOCLOPRAMIDE HYDROCHLORIDE
     Indication: VOMITING
     Dosage: 10 MG
     Route: 048
     Dates: end: 20130711
  9. NATRIX [Concomitant]
     Active Substance: INDAPAMIDE
     Indication: OEDEMA DUE TO RENAL DISEASE
     Dosage: 1 MG
     Route: 048
     Dates: start: 20130524, end: 20130712
  10. GASMOTIN [Concomitant]
     Active Substance: MOSAPRIDE CITRATE
     Indication: VOMITING
     Dosage: 15 MG
     Route: 048
     Dates: end: 20130711

REACTIONS (4)
  - Pemphigoid [Not Recovered/Not Resolved]
  - Orthostatic hypotension [Not Recovered/Not Resolved]
  - Septic shock [Fatal]
  - Renal failure [Not Recovered/Not Resolved]

NARRATIVE: CASE EVENT DATE: 201305
